FAERS Safety Report 18843445 (Version 1)
Quarter: 2021Q1

REPORT INFORMATION
  Report Type: Report from Study
  Country: US (occurrence: US)
  Receive Date: 20210203
  Receipt Date: 20210203
  Transmission Date: 20210419
  Serious: No
  Sender: FDA-Public Use
  Company Number: US-EXELIXIS-CABO-19025996

PATIENT
  Sex: Female

DRUGS (1)
  1. CABOMETYX [Suspect]
     Active Substance: CABOZANTINIB S-MALATE
     Indication: NEOPLASM MALIGNANT
     Dosage: 60 MG, QD
     Route: 048
     Dates: start: 20191107

REACTIONS (6)
  - Fungal infection [Unknown]
  - Mouth haemorrhage [Unknown]
  - Oral discomfort [Unknown]
  - Muscle spasms [Unknown]
  - Urinary tract infection [Unknown]
  - Rash [Unknown]
